FAERS Safety Report 19645468 (Version 1)
Quarter: 2021Q3

REPORT INFORMATION
  Report Type: Spontaneous
  Country: US (occurrence: US)
  Receive Date: 20210802
  Receipt Date: 20210802
  Transmission Date: 20211014
  Serious: Yes (Other)
  Sender: FDA-Public Use
  Company Number: US-STRIDES ARCOLAB LIMITED-2021SP004757

PATIENT
  Age: 14 Year
  Sex: Female

DRUGS (9)
  1. TACROLIMUS. [Suspect]
     Active Substance: TACROLIMUS
     Indication: PROPHYLAXIS AGAINST GRAFT VERSUS HOST DISEASE
     Dosage: UNK
     Route: 065
  2. MYCOPHENOLATE MOFETIL. [Suspect]
     Active Substance: MYCOPHENOLATE MOFETIL
     Indication: PROPHYLAXIS AGAINST GRAFT VERSUS HOST DISEASE
     Dosage: UNK
     Route: 065
  3. METHYLPREDNISOLONE. [Suspect]
     Active Substance: METHYLPREDNISOLONE
     Indication: PROPHYLAXIS AGAINST GRAFT VERSUS HOST DISEASE
     Dosage: 2 MILLIGRAM/KILOGRAM PER DAY 8?WEEK COURSE
     Route: 065
  4. INFLIXIMAB [Suspect]
     Active Substance: INFLIXIMAB
     Indication: PROPHYLAXIS AGAINST GRAFT VERSUS HOST DISEASE
     Dosage: UNK
     Route: 065
  5. BUDESONIDE. [Suspect]
     Active Substance: BUDESONIDE
     Indication: PROPHYLAXIS AGAINST GRAFT VERSUS HOST DISEASE
     Dosage: UNK
     Route: 065
  6. BUSULFAN. [Concomitant]
     Active Substance: BUSULFAN
     Indication: PROPHYLAXIS
     Dosage: UNK
     Route: 065
  7. CYCLOSPORINE. [Suspect]
     Active Substance: CYCLOSPORINE
     Indication: PROPHYLAXIS AGAINST GRAFT VERSUS HOST DISEASE
     Dosage: UNK
     Route: 065
  8. FLUDARABINE [Concomitant]
     Active Substance: FLUDARABINE PHOSPHATE
     Indication: PROPHYLAXIS
     Dosage: UNK
     Route: 065
  9. CYCLOPHOSPHAMIDE. [Concomitant]
     Active Substance: CYCLOPHOSPHAMIDE
     Indication: PROPHYLAXIS
     Dosage: UNK
     Route: 065

REACTIONS (6)
  - Drug resistance [Unknown]
  - Off label use [Unknown]
  - Therapeutic product effect delayed [Unknown]
  - Cytomegalovirus infection [Unknown]
  - Human herpesvirus 6 infection [Unknown]
  - Drug ineffective [Unknown]
